FAERS Safety Report 9786401 (Version 5)
Quarter: 2014Q1

REPORT INFORMATION
  Report Type: Report from Study
  Country: US (occurrence: US)
  Receive Date: 20131227
  Receipt Date: 20140303
  Transmission Date: 20141002
  Serious: Yes (Hospitalization)
  Sender: FDA-Public Use
  Company Number: US-JNJFOC-20131101887

PATIENT
  Age: 68 Year
  Sex: Male
  Weight: 79.3 kg

DRUGS (12)
  1. ABIRATERONE ACETATE [Suspect]
     Indication: PROSTATE CANCER
     Route: 048
     Dates: start: 20130321, end: 20131003
  2. PREDNISONE [Suspect]
     Indication: PROSTATE CANCER
     Route: 048
     Dates: start: 20130321, end: 20131003
  3. DECADRON [Suspect]
     Indication: PRODUCT USED FOR UNKNOWN INDICATION
     Dosage: 30 DAY COURSE AT REDUCED DOSE
     Route: 048
  4. DECADRON [Suspect]
     Indication: PRODUCT USED FOR UNKNOWN INDICATION
     Route: 048
  5. TYLENOL 3 [Concomitant]
     Indication: PAIN
     Dosage: AS NECESSARY
     Route: 048
  6. DULCOLAX [Concomitant]
     Route: 048
  7. GLYNASE [Concomitant]
     Dosage: 2 TABLETS IN THE MORNING, 1 AT NIGHT
     Route: 048
  8. INSULIN NPH [Concomitant]
     Route: 050
  9. INSULIN [Concomitant]
     Route: 058
  10. LISINOPRIL [Concomitant]
     Route: 048
  11. PRILOSEC [Concomitant]
     Route: 048
  12. FLOMAX [Concomitant]
     Route: 048

REACTIONS (5)
  - Hyperkalaemia [Recovered/Resolved with Sequelae]
  - Abdominal pain [Recovered/Resolved]
  - Hyperglycaemia [Recovered/Resolved]
  - Back pain [Recovered/Resolved]
  - Urinary tract infection [Recovered/Resolved]
